FAERS Safety Report 13231875 (Version 1)
Quarter: 2017Q1

REPORT INFORMATION
  Report Type: Spontaneous
  Country: US (occurrence: US)
  Receive Date: 20170214
  Receipt Date: 20170214
  Transmission Date: 20170428
  Serious: Yes (Hospitalization, Other)
  Sender: FDA-Public Use
  Company Number: US-AMAG PHARMACEUTICALS, INC.-AMAG201600868

PATIENT

DRUGS (2)
  1. ANTIBIOTICS [Concomitant]
     Active Substance: UNSPECIFIED INGREDIENT
     Dosage: UNK
  2. MAKENA [Suspect]
     Active Substance: HYDROXYPROGESTERONE CAPROATE
     Indication: PREMATURE DELIVERY
     Dosage: UNK
     Route: 065
     Dates: start: 20160223

REACTIONS (2)
  - Premature delivery [Unknown]
  - Premature rupture of membranes [Unknown]

NARRATIVE: CASE EVENT DATE: 2016
